FAERS Safety Report 4599910-4 (Version None)
Quarter: 2005Q1

REPORT INFORMATION
  Report Type: 
  Country: None (occurrence: None)
  Receive Date: 20050303
  Receipt Date: 20050216
  Transmission Date: 20050727
  Serious: Yes (Life-Threatening, Hospitalization)
  Sender: FDA-Public Use
  Company Number: DE_050215237

PATIENT
  Age: 42 Year
  Sex: Male

DRUGS (4)
  1. FLUOXETINE [Suspect]
     Indication: DEPRESSION
     Dosage: 40 MG DAY
     Dates: start: 20041101, end: 20050205
  2. CLOZAPINE [Concomitant]
  3. LEUKOCYTE  COUNT [Concomitant]
  4. NEUTROPHILS [Concomitant]

REACTIONS (6)
  - ABSCESS JAW [None]
  - AGRANULOCYTOSIS [None]
  - DRUG INTERACTION [None]
  - LEUKOPENIA [None]
  - NEUTROPHIL COUNT DECREASED [None]
  - NEUTROPHIL PERCENTAGE DECREASED [None]
